FAERS Safety Report 4315178-8 (Version None)
Quarter: 2004Q1

REPORT INFORMATION
  Report Type: 
  Country: None (occurrence: None)
  Receive Date: 20040310
  Receipt Date: 20040225
  Transmission Date: 20041129
  Serious: Yes (Hospitalization, Other)
  Sender: FDA-Public Use
  Company Number: US-JNJFOC-20031100824

PATIENT
  Age: 31 Year
  Sex: Male

DRUGS (10)
  1. REMICADE [Suspect]
     Indication: CROHN'S DISEASE
     Dosage: 490 MG, INTRAVENOUS
     Route: 042
     Dates: start: 20010905
  2. REMICADE [Suspect]
     Indication: CROHN'S DISEASE
     Dosage: 490 MG, INTRAVENOUS
     Route: 042
     Dates: start: 20011005
  3. REMICADE [Suspect]
     Indication: CROHN'S DISEASE
     Dosage: 490 MG, INTRAVENOUS
     Route: 042
     Dates: start: 20011023
  4. EFFEXOR [Suspect]
  5. PREDNISONE [Concomitant]
  6. PENTASA [Concomitant]
  7. LEVBID (HYOSCYAMINE SULFATE) [Concomitant]
  8. VICODIN [Concomitant]
  9. ACIPHEX [Concomitant]
  10. IMUREN (AZATHIOPRINE) [Concomitant]

REACTIONS (14)
  - ABDOMINAL PAIN [None]
  - ALANINE AMINOTRANSFERASE INCREASED [None]
  - ANHEDONIA [None]
  - CROHN'S DISEASE [None]
  - DISEASE RECURRENCE [None]
  - DISSEMINATED TUBERCULOSIS [None]
  - DYSPEPSIA [None]
  - INJURY [None]
  - LIVER FUNCTION TEST ABNORMAL [None]
  - MENTAL DISORDER [None]
  - NAUSEA [None]
  - PAIN [None]
  - SPLENOMEGALY [None]
  - TUBERCULOSIS [None]
